FAERS Safety Report 5723481-X (Version None)
Quarter: 2008Q2

REPORT INFORMATION
  Report Type: 
  Country: None (occurrence: None)
  Receive Date: 20080425
  Receipt Date: 20080415
  Transmission Date: 20081010
  Serious: Yes (Congenital Anomaly)
  Sender: FDA-Public Use
  Company Number: 100#03#2008-02154

PATIENT

DRUGS (8)
  1. ONDANSETRON HCL [Suspect]
     Indication: DRUG EXPOSURE DURING PREGNANCY
     Dosage: 4 MG TWICE DAILY TRANSPLACENTAL : 4 MG THREE TIMES DAILY TRANSPLACENTAL
     Route: 064
     Dates: start: 20080112, end: 20080114
  2. ONDANSETRON HCL [Suspect]
     Indication: DRUG EXPOSURE DURING PREGNANCY
     Dosage: 4 MG TWICE DAILY TRANSPLACENTAL : 4 MG THREE TIMES DAILY TRANSPLACENTAL
     Route: 064
     Dates: start: 20080114
  3. CYCLIZINE (CYCLIZINE) [Suspect]
     Dosage: 50 MG THREE TIMES DAILY TRANSPLACENTAL
     Route: 064
     Dates: start: 20080109, end: 20080114
  4. FOLIC ACID [Suspect]
     Indication: DRUG EXPOSURE DURING PREGNANCY
     Dosage: 5 MG ONCE DAILY TRANSPLACENTAL
     Route: 064
  5. METOCLOPRAMIDE [Suspect]
     Dosage: 10 MG THREE TIMES DAILY TRANSPLACENTAL
     Route: 064
     Dates: start: 20080109, end: 20080115
  6. METOCLOPRAMIDE [Suspect]
     Dosage: 10 MG THREE TIMES DAILY TRANSPLACENTAL
     Route: 064
     Dates: start: 20080116
  7. PROMETHAZINE [Suspect]
     Indication: DRUG EXPOSURE DURING PREGNANCY
     Dosage: 25 MG THREE TIMES DAY TRANSPLACENTAL
     Route: 064
     Dates: start: 20080109, end: 20080110
  8. THIAMIN CHLORIDE ELIXIR [Suspect]
     Indication: DRUG EXPOSURE DURING PREGNANCY
     Dosage: 25 MG ONCE DAILY TRANSPLACENTAL
     Route: 064
     Dates: start: 20080114

REACTIONS (7)
  - CONGENITAL HYDRONEPHROSIS [None]
  - DRUG EXPOSURE DURING PREGNANCY [None]
  - FOETAL GROWTH RETARDATION [None]
  - GASTROSCHISIS [None]
  - HEART DISEASE CONGENITAL [None]
  - MATERNAL DRUGS AFFECTING FOETUS [None]
  - SPINE MALFORMATION [None]
